FAERS Safety Report 10186823 (Version 1)
Quarter: 2014Q2

REPORT INFORMATION
  Report Type: Report from Study
  Country: CN (occurrence: CN)
  Receive Date: 20140522
  Receipt Date: 20140522
  Transmission Date: 20141212
  Serious: Yes (Other)
  Sender: FDA-Public Use
  Company Number: CN-ROCHE-1404601

PATIENT
  Age: 51 Year
  Sex: Male
  Weight: 50 kg

DRUGS (4)
  1. PEGASYS [Suspect]
     Indication: HEPATITIS C
     Route: 058
     Dates: start: 2013, end: 2013
  2. PEGASYS [Suspect]
     Route: 058
     Dates: start: 20140414
  3. RIBAVIRIN [Suspect]
     Indication: HEPATITIS C
     Dosage: 600MG PER DAY
     Route: 048
     Dates: start: 2013, end: 2013
  4. RIBAVIRIN [Suspect]
     Dosage: 600MG PER DAY
     Route: 048
     Dates: start: 20140414

REACTIONS (4)
  - Hepatitis C RNA increased [Unknown]
  - Lymphocyte count decreased [Unknown]
  - White blood cell count decreased [Unknown]
  - Neutrophil count decreased [Not Recovered/Not Resolved]
